FAERS Safety Report 7537224-0 (Version None)
Quarter: 2011Q2

REPORT INFORMATION
  Report Type: 
  Country: None (occurrence: None)
  Receive Date: 20110603
  Receipt Date: 20110518
  Transmission Date: 20111010
  Serious: Yes (Hospitalization)
  Sender: FDA-Public Use
  Company Number: 2011MA006067

PATIENT
  Age: 81 Year
  Sex: Female

DRUGS (2)
  1. ASPIRIN [Concomitant]
  2. CILOSTAZOL [Suspect]
     Indication: ANTIPLATELET THERAPY
     Dosage: 200 MG;OD

REACTIONS (7)
  - RETROPERITONEAL HAEMATOMA [None]
  - MUSCLE HAEMORRHAGE [None]
  - ANAEMIA [None]
  - HAEMORRHAGE [None]
  - PLATELET COUNT DECREASED [None]
  - MUSCULAR WEAKNESS [None]
  - SHOCK [None]
